FAERS Safety Report 9424349 (Version 1)
Quarter: 2013Q3

REPORT INFORMATION
  Report Type: Spontaneous
  Country: IL (occurrence: None)
  Receive Date: 20130724
  Receipt Date: 20130724
  Transmission Date: 20140515
  Serious: Yes (Hospitalization)
  Sender: FDA-Public Use
  Company Number: 2013-3018

PATIENT
  Age: 47 Year
  Sex: Female

DRUGS (4)
  1. SOMATULINE [Suspect]
     Indication: PRODUCT USED FOR UNKNOWN INDICATION
     Dosage: 120MG (120MG 1 IN 29
     Route: 058
  2. ADVIL (IBUPROFEN) [Concomitant]
  3. OPTALGIN (METAMIZOLE SODIUM) [Concomitant]
  4. TRAMADEX (TRAMADOL HYDROCHLORIDE) [Concomitant]

REACTIONS (6)
  - Stress fracture [None]
  - Arthralgia [None]
  - Pain in extremity [None]
  - Blood potassium decreased [None]
  - Diarrhoea [None]
  - Haemoglobin decreased [None]
